FAERS Safety Report 4830954-0 (Version None)
Quarter: 2005Q4

REPORT INFORMATION
  Report Type: 
  Country: None (occurrence: None)
  Receive Date: 20051114
  Receipt Date: 20051028
  Transmission Date: 20060501
  Serious: Yes (Hospitalization, Other)
  Sender: FDA-Public Use
  Company Number: 2005-02250

PATIENT
  Age: 53 Year
  Sex: Male
  Weight: 74 kg

DRUGS (8)
  1. VELCADE [Suspect]
     Indication: MULTIPLE MYELOMA
     Dosage: 1.30 MG/M2, 2/WEEK, INTRAVENOUS
     Route: 042
     Dates: start: 20041111, end: 20050329
  2. ZOMETA [Concomitant]
  3. MEPHAMESON (DEXAMETHASONE PHOSPHATE) [Concomitant]
  4. NAVOBAN (TROPISETRON HYDROCHLORIDE) [Concomitant]
  5. ACETAMINOPHEN [Concomitant]
  6. BACTRIM [Concomitant]
  7. ZOVIRAX [Concomitant]
  8. DEXAMETHASONE [Concomitant]

REACTIONS (4)
  - CLOSTRIDIUM COLITIS [None]
  - NEUROPATHY [None]
  - PNEUMONIA [None]
  - VASCULITIS NECROTISING [None]
